FAERS Safety Report 8156755-6 (Version None)
Quarter: 2012Q1

REPORT INFORMATION
  Report Type: 
  Country: None (occurrence: None)
  Receive Date: 20120222
  Receipt Date: 20120207
  Transmission Date: 20120608
  Serious: Yes (Other)
  Sender: FDA-Public Use
  Company Number: US-ENDO PHARMACEUTICALS INC.-OPIR20120010

PATIENT
  Sex: Female

DRUGS (1)
  1. OPANA [Suspect]
     Indication: DRUG DEPENDENCE
     Dosage: UNKNOWN
     Route: 048

REACTIONS (3)
  - DRUG DEPENDENCE [None]
  - MATERNAL EXPOSURE DURING PREGNANCY [None]
  - MATERNAL USE OF ILLICIT DRUGS [None]
